FAERS Safety Report 9736150 (Version 2)
Quarter: 2014Q1

REPORT INFORMATION
  Report Type: Spontaneous
  Country: IT (occurrence: GB)
  Receive Date: 20131206
  Receipt Date: 20140220
  Transmission Date: 20141002
  Serious: Yes (Other)
  Sender: FDA-Public Use
  Company Number: GB-FRI-1000051874

PATIENT
  Sex: Male

DRUGS (6)
  1. NEBIVOLOL [Suspect]
     Indication: BLOOD PRESSURE MANAGEMENT
     Dosage: 2.5 MG
  2. ATORVASTATIN [Concomitant]
  3. BUMETANIDE [Concomitant]
  4. FINASTERIDE [Concomitant]
     Indication: PROSTATIC DISORDER
  5. TAMSULOSIN [Concomitant]
  6. WARFARIN [Concomitant]

REACTIONS (1)
  - Blood pressure increased [Not Recovered/Not Resolved]
